FAERS Safety Report 4896726-6 (Version None)
Quarter: 2006Q1

REPORT INFORMATION
  Report Type: 
  Country: None (occurrence: None)
  Receive Date: 20060131
  Receipt Date: 20051006
  Transmission Date: 20060701
  Serious: Yes (Death, Hospitalization, Other)
  Sender: FDA-Public Use
  Company Number: US-MERCK-0510USA05608

PATIENT
  Age: 65 Year
  Sex: Female

DRUGS (4)
  1. VIOXX [Suspect]
     Route: 048
  2. ALPRAZOLAM [Concomitant]
     Route: 065
  3. ALTOCOR [Concomitant]
     Route: 065
  4. [THERAPY UNSPECIFIED] [Concomitant]
     Route: 065

REACTIONS (4)
  - CHEST PAIN [None]
  - DEATH [None]
  - HYPERTENSION [None]
  - MYOCARDIAL INFARCTION [None]
